FAERS Safety Report 23606265 (Version 2)
Quarter: 2024Q2

REPORT INFORMATION
  Report Type: Spontaneous
  Country: US (occurrence: US)
  Receive Date: 20240307
  Receipt Date: 20240507
  Transmission Date: 20240716
  Serious: Yes (Death, Other)
  Sender: FDA-Public Use
  Company Number: US-GSK-US2024028417

PATIENT

DRUGS (1)
  1. TRELEGY ELLIPTA [Suspect]
     Active Substance: FLUTICASONE FUROATE\UMECLIDINIUM BROMIDE\VILANTEROL TRIFENATATE
     Indication: Chronic obstructive pulmonary disease
     Dosage: 1 PUFF(S), QD,200 MCG - 62.5 - 25MCG, AT THE SAME TIME EACH DAY.2
     Dates: start: 20190421, end: 20240226

REACTIONS (1)
  - Death [Fatal]

NARRATIVE: CASE EVENT DATE: 20240226
